FAERS Safety Report 19000027 (Version 1)
Quarter: 2021Q1

REPORT INFORMATION
  Report Type: Report from Study
  Country: CA (occurrence: CA)
  Receive Date: 20210311
  Receipt Date: 20210311
  Transmission Date: 20210420
  Serious: Yes (Hospitalization)
  Sender: FDA-Public Use
  Company Number: CA-BAUSCH-BL-2021-007654

PATIENT
  Age: 32 Year
  Sex: Female
  Weight: 109 kg

DRUGS (18)
  1. DEXAMETHASONE. [Suspect]
     Active Substance: DEXAMETHASONE
     Indication: HEADACHE
  2. DEXAMETHASONE. [Suspect]
     Active Substance: DEXAMETHASONE
     Indication: DYSARTHRIA
  3. DEXAMETHASONE. [Suspect]
     Active Substance: DEXAMETHASONE
     Indication: B PRECURSOR TYPE ACUTE LEUKAEMIA
  4. CYTARABINE. [Suspect]
     Active Substance: CYTARABINE
     Indication: B PRECURSOR TYPE ACUTE LEUKAEMIA
     Dosage: POWDER FOR SOLUTION INTRATHECAL
     Route: 065
  5. DAUNORUBICIN [Suspect]
     Active Substance: DAUNORUBICIN
     Indication: B PRECURSOR TYPE ACUTE LEUKAEMIA
     Route: 065
  6. MERCAPTOPURINE. [Suspect]
     Active Substance: MERCAPTOPURINE
     Indication: B PRECURSOR TYPE ACUTE LEUKAEMIA
     Route: 065
  7. PEGASPARGASE [Suspect]
     Active Substance: PEGASPARGASE
     Indication: B PRECURSOR TYPE ACUTE LEUKAEMIA
     Route: 065
  8. RITUXIMAB. [Suspect]
     Active Substance: RITUXIMAB
     Indication: B PRECURSOR TYPE ACUTE LEUKAEMIA
     Route: 065
  9. VINCRISTINE SULFATE. [Suspect]
     Active Substance: VINCRISTINE SULFATE
     Indication: B PRECURSOR TYPE ACUTE LEUKAEMIA
     Route: 065
  10. DEXAMETHASONE. [Suspect]
     Active Substance: DEXAMETHASONE
     Indication: TREMOR
     Route: 042
  11. DEXAMETHASONE. [Suspect]
     Active Substance: DEXAMETHASONE
     Indication: B PRECURSOR TYPE ACUTE LEUKAEMIA
  12. LEUCOVORIN CALCIUM. [Suspect]
     Active Substance: LEUCOVORIN CALCIUM
     Indication: B PRECURSOR TYPE ACUTE LEUKAEMIA
     Route: 065
  13. METHOTREXATE. [Suspect]
     Active Substance: METHOTREXATE
     Indication: B PRECURSOR TYPE ACUTE LEUKAEMIA
     Route: 065
  14. CYCLOPHOSPHAMIDE. [Suspect]
     Active Substance: CYCLOPHOSPHAMIDE
     Indication: B PRECURSOR TYPE ACUTE LEUKAEMIA
     Route: 065
  15. DEXAMETHASONE. [Suspect]
     Active Substance: DEXAMETHASONE
     Indication: TREMOR
     Route: 065
  16. DEXAMETHASONE. [Suspect]
     Active Substance: DEXAMETHASONE
     Indication: DYSARTHRIA
  17. DEXAMETHASONE. [Suspect]
     Active Substance: DEXAMETHASONE
     Indication: HEADACHE
     Route: 042
  18. BLINATUMOMAB [Suspect]
     Active Substance: BLINATUMOMAB
     Indication: B PRECURSOR TYPE ACUTE LEUKAEMIA
     Route: 042

REACTIONS (4)
  - Alanine aminotransferase increased [Recovered/Resolved]
  - Dysarthria [Recovered/Resolved]
  - Tremor [Recovered/Resolved]
  - Headache [Recovered/Resolved]
